FAERS Safety Report 17061526 (Version 4)
Quarter: 2020Q4

REPORT INFORMATION
  Report Type: Report from Study
  Country: CA (occurrence: CA)
  Receive Date: 20191121
  Receipt Date: 20201116
  Transmission Date: 20210113
  Serious: Yes (Death, Hospitalization)
  Sender: FDA-Public Use
  Company Number: CA-CELGENEUS-CAN-20191105827

PATIENT
  Age: 4 Year
  Sex: Male
  Weight: 14 kg

DRUGS (13)
  1. PACKED RED BLOOD CELLS [Concomitant]
     Active Substance: HUMAN RED BLOOD CELL
     Indication: ANAEMIA
     Route: 041
     Dates: start: 20191113, end: 20191113
  2. FLUDROCORTISONE [Concomitant]
     Active Substance: FLUDROCORTISONE
     Indication: ADRENAL INSUFFICIENCY
     Dosage: 200 MICROGRAM
     Route: 065
     Dates: start: 20181213
  3. BACTRIM [Concomitant]
     Active Substance: SULFAMETHOXAZOLE\TRIMETHOPRIM
     Indication: PROPHYLAXIS
     Dosage: 40-200 MG/5 ML; 6 ML SAT+SUN
     Route: 065
     Dates: start: 20180525
  4. CARBOPLATIN. [Suspect]
     Active Substance: CARBOPLATIN
     Indication: BRAIN NEOPLASM
     Dosage: AUC 3
     Route: 065
     Dates: start: 20191015, end: 20191112
  5. FLUDROCORTISONE [Concomitant]
     Active Substance: FLUDROCORTISONE
     Dosage: 200 MICROGRAM
     Route: 065
     Dates: start: 20191118, end: 20191215
  6. ONDANSETRON [Concomitant]
     Active Substance: ONDANSETRON
     Route: 065
     Dates: start: 201911
  7. CYCLIZINE [Concomitant]
     Active Substance: CYCLIZINE
     Indication: VOMITING
     Dosage: 60 MILLIGRAM
     Route: 065
     Dates: start: 20191114
  8. PEGFILGRASTIM [Concomitant]
     Active Substance: PEGFILGRASTIM
     Route: 065
     Dates: start: 20191106
  9. MAGNESIUM SULPHATE [Concomitant]
     Active Substance: MAGNESIUM SULFATE
     Indication: HYPOMAGNESAEMIA
     Route: 065
  10. PANTOPRAZOLE [Concomitant]
     Active Substance: PANTOPRAZOLE
     Indication: GASTROOESOPHAGEAL REFLUX DISEASE
     Route: 065
  11. AZACITIDINE. [Suspect]
     Active Substance: AZACITIDINE
     Indication: BRAIN NEOPLASM
     Route: 058
     Dates: start: 20191001, end: 20191104
  12. PEGFILGRASTIM [Concomitant]
     Active Substance: PEGFILGRASTIM
     Indication: PROPHYLAXIS
     Dosage: DAY 8 OF CYCLE
     Route: 065
     Dates: start: 20191008, end: 20191106
  13. ONDANSETRON [Concomitant]
     Active Substance: ONDANSETRON
     Indication: GASTROINTESTINAL DISORDER
     Route: 065
     Dates: start: 20180718

REACTIONS (4)
  - Adrenal insufficiency [Not Recovered/Not Resolved]
  - Adrenocortical carcinoma [Fatal]
  - Vomiting [Not Recovered/Not Resolved]
  - Adrenocortical insufficiency acute [Not Recovered/Not Resolved]

NARRATIVE: CASE EVENT DATE: 20191113
